FAERS Safety Report 5877855-7 (Version None)
Quarter: 2008Q3

REPORT INFORMATION
  Report Type: 
  Country: None (occurrence: None)
  Receive Date: 20080911
  Receipt Date: 20080828
  Transmission Date: 20090109
  Serious: Yes (Life-Threatening, Other)
  Sender: FDA-Public Use
  Company Number: DE-BAYER-200825830GPV

PATIENT
  Age: 17 Year
  Sex: Male

DRUGS (4)
  1. FLUDARABINE PHOSPHATE [Suspect]
     Indication: BONE MARROW CONDITIONING REGIMEN
     Route: 065
  2. MELPHALAN [Suspect]
     Indication: BONE MARROW CONDITIONING REGIMEN
     Route: 065
  3. THIOTEPA [Suspect]
     Indication: BONE MARROW CONDITIONING REGIMEN
     Route: 065
  4. ORTHOCLONE OKT3 [Suspect]
     Indication: BONE MARROW CONDITIONING REGIMEN
     Route: 065

REACTIONS (4)
  - HUMAN HERPESVIRUS 8 INFECTION [None]
  - KAPOSI'S SARCOMA [None]
  - METASTASES TO LUNG [None]
  - SEPSIS [None]
